FAERS Safety Report 5727296-8 (Version None)
Quarter: 2008Q2

REPORT INFORMATION
  Report Type: 
  Country: None (occurrence: None)
  Receive Date: 20080505
  Receipt Date: 20080423
  Transmission Date: 20081010
  Serious: Yes (Congenital Anomaly, Other)
  Sender: FDA-Public Use
  Company Number: GB-ABBOTT-05P-167-0311366-00

PATIENT
  Sex: Male
  Weight: 3.7 kg

DRUGS (1)
  1. VALPROIC ACID [Suspect]
     Indication: DRUG EXPOSURE DURING PREGNANCY
     Route: 064

REACTIONS (23)
  - ABNORMAL BEHAVIOUR [None]
  - AUTISM SPECTRUM DISORDER [None]
  - CAFE AU LAIT SPOTS [None]
  - COGNITIVE DISORDER [None]
  - COMMUNICATION DISORDER [None]
  - CONGENITAL HAIR DISORDER [None]
  - CONGENITAL ORAL MALFORMATION [None]
  - DISTURBANCE IN ATTENTION [None]
  - DYSMORPHISM [None]
  - ECHOLALIA [None]
  - ELBOW DEFORMITY [None]
  - FINE MOTOR DELAY [None]
  - FOETAL ANTICONVULSANT SYNDROME [None]
  - FOETAL DISTRESS SYNDROME [None]
  - FOOT DEFORMITY [None]
  - HYPOSPADIAS [None]
  - LIP DISORDER [None]
  - MOTOR DYSFUNCTION [None]
  - MOVEMENT DISORDER [None]
  - NOSE DEFORMITY [None]
  - SPEECH DISORDER [None]
  - SPEECH DISORDER DEVELOPMENTAL [None]
  - URETHRAL FISTULA [None]
